FAERS Safety Report 5076885-5 (Version None)
Quarter: 2006Q3

REPORT INFORMATION
  Report Type: 
  Country: None (occurrence: None)
  Receive Date: 20060810
  Receipt Date: 20060803
  Transmission Date: 20061208
  Serious: Yes (Other)
  Sender: FDA-Public Use
  Company Number: US-JNJFOC-20060801457

PATIENT
  Age: 31 Year
  Sex: Female
  Weight: 99.79 kg

DRUGS (1)
  1. ULTRAM [Suspect]
     Indication: PAIN
     Route: 048

REACTIONS (4)
  - ADRENAL NEOPLASM [None]
  - CALCIUM DEFICIENCY [None]
  - OSTEOPOROSIS [None]
  - OVARIAN DISORDER [None]
